FAERS Safety Report 15344421 (Version 2)
Quarter: 2018Q4

REPORT INFORMATION
  Report Type: Spontaneous
  Country: US (occurrence: US)
  Receive Date: 20180903
  Receipt Date: 20181211
  Transmission Date: 20190204
  Serious: Yes (Other)
  Sender: FDA-Public Use
  Company Number: US-SA-2018SA237865

PATIENT
  Age: 63 Year
  Sex: Female
  Weight: 63 kg

DRUGS (36)
  1. PALONOSETRON. [Concomitant]
     Active Substance: PALONOSETRON HYDROCHLORIDE
     Dosage: 250 UG, UNK
     Dates: start: 20110623, end: 20110623
  2. NEULASTA [Concomitant]
     Active Substance: PEGFILGRASTIM
     Dosage: 6 MG, UNK
     Dates: start: 20110919
  3. CARAFATE [Concomitant]
     Active Substance: SUCRALFATE
     Dosage: UNK UNK, UNK
  4. HERCEPTIN [Concomitant]
     Active Substance: TRASTUZUMAB
     Indication: CHEMOTHERAPY
     Dosage: 504 MG, UNK
     Dates: start: 20110623, end: 20110623
  5. HERCEPTIN [Concomitant]
     Active Substance: TRASTUZUMAB
     Dosage: 380 MG, UNK
     Dates: start: 20110803, end: 20110803
  6. TAXOTERE [Suspect]
     Active Substance: DOCETAXEL
     Dosage: 120 MG, Q3W
     Route: 042
     Dates: start: 20111007, end: 20111007
  7. HERCEPTIN [Concomitant]
     Active Substance: TRASTUZUMAB
     Dosage: 380 MG, UNK
     Dates: start: 20110916, end: 20110916
  8. DECADRON [DEXAMETHASONE] [Concomitant]
     Dosage: 10 MG, UNK
     Dates: start: 20110701, end: 20110701
  9. EMEND [Concomitant]
     Active Substance: APREPITANT
     Dosage: 150 MG, UNK
     Dates: start: 20110623, end: 20110623
  10. EMEND [Concomitant]
     Active Substance: APREPITANT
     Dosage: 150 MG, UNK
     Dates: start: 20111007, end: 20111007
  11. PARAPLATIN [Concomitant]
     Active Substance: CARBOPLATIN
     Dosage: UNK
  12. NEULASTA [Concomitant]
     Active Substance: PEGFILGRASTIM
     Dosage: 6 MG, UNK
     Dates: start: 20110624, end: 20110624
  13. DECADRON [DEXAMETHASONE] [Concomitant]
     Dosage: 8 MG, UNK
     Dates: start: 20110916, end: 20110916
  14. VICODIN [Concomitant]
     Active Substance: ACETAMINOPHEN\HYDROCODONE BITARTRATE
     Dosage: UNK UNK, UNK
  15. NEXIUM [ESOMEPRAZOLE MAGNESIUM] [Concomitant]
     Dosage: UNK UNK, UNK
  16. HEPARIN [HEPARIN SODIUM] [Concomitant]
     Dosage: 500 U, UNK
     Dates: start: 20110623, end: 20110623
  17. HEPARIN [HEPARIN SODIUM] [Concomitant]
     Dosage: 500 U, UNK
     Dates: start: 20111007, end: 20111007
  18. TAXOTERE [Suspect]
     Active Substance: DOCETAXEL
     Dosage: 120 MG, Q3W
     Route: 042
     Dates: start: 20180713, end: 20180713
  19. TAXOTERE [Suspect]
     Active Substance: DOCETAXEL
     Dosage: 120 MG, Q3W
     Route: 042
     Dates: start: 20110826, end: 20110826
  20. PARAPLATIN [Concomitant]
     Active Substance: CARBOPLATIN
     Dosage: 500 MG, UNK
     Dates: start: 20110916, end: 20110916
  21. HERCEPTIN [Concomitant]
     Active Substance: TRASTUZUMAB
     Dosage: 380 MG, UNK
     Dates: start: 20111007, end: 20111007
  22. DECADRON [DEXAMETHASONE] [Concomitant]
     Dosage: 08 MG, UNK
     Dates: start: 20110623, end: 20110623
  23. DECADRON [DEXAMETHASONE] [Concomitant]
     Dosage: 8 MG, UNK
     Dates: start: 20111007, end: 20111007
  24. PALONOSETRON. [Concomitant]
     Active Substance: PALONOSETRON HYDROCHLORIDE
     Dosage: 250 UG, UNK
     Dates: start: 20110701, end: 20110701
  25. MIRALAX [Concomitant]
     Active Substance: POLYETHYLENE GLYCOL 3350
     Dosage: UNK UNK, UNK
  26. TAXOTERE [Suspect]
     Active Substance: DOCETAXEL
     Indication: BREAST CANCER FEMALE
     Dosage: 120 MG, Q3W
     Route: 042
     Dates: start: 20110623, end: 20110623
  27. PALONOSETRON. [Concomitant]
     Active Substance: PALONOSETRON HYDROCHLORIDE
     Dosage: 250 UG, UNK
     Dates: start: 20111007, end: 20111007
  28. LORAZEPAM. [Concomitant]
     Active Substance: LORAZEPAM
     Dosage: UNK UNK, UNK
  29. HEPARIN [HEPARIN SODIUM] [Concomitant]
     Dosage: 500 U, UNK
     Dates: start: 20110701, end: 20110701
  30. TAXOTERE [Suspect]
     Active Substance: DOCETAXEL
     Dosage: 120 MG, Q3W
     Route: 042
     Dates: start: 20110803, end: 20110803
  31. TAXOTERE [Suspect]
     Active Substance: DOCETAXEL
     Dosage: 120 MG, Q3W
     Route: 042
     Dates: start: 20110916, end: 20110916
  32. PARAPLATIN [Concomitant]
     Active Substance: CARBOPLATIN
     Indication: CHEMOTHERAPY
     Dosage: 500 MG, UNK
     Dates: start: 20110623, end: 20110623
  33. PARAPLATIN [Concomitant]
     Active Substance: CARBOPLATIN
     Dosage: 500 MG, UNK
     Dates: start: 20111007, end: 20111007
  34. HERCEPTIN [Concomitant]
     Active Substance: TRASTUZUMAB
     Dosage: 380 MG, UNK
     Dates: start: 20110713, end: 20110713
  35. PRILOSEC [Concomitant]
     Active Substance: OMEPRAZOLE MAGNESIUM
     Dosage: UNK UNK, UNK
  36. COMPAZINE [Concomitant]
     Active Substance: PROCHLORPERAZINE MALEATE
     Dosage: UNK UNK, UNK

REACTIONS (1)
  - Alopecia [Recovering/Resolving]

NARRATIVE: CASE EVENT DATE: 20120401
